FAERS Safety Report 5460878-X (Version None)
Quarter: 2007Q3

REPORT INFORMATION
  Report Type: 
  Country: None (occurrence: None)
  Receive Date: 20070827
  Receipt Date: 20070618
  Transmission Date: 20080115
  Serious: No
  Sender: FDA-Public Use
  Company Number: 263319

PATIENT
  Age: 46 Year
  Sex: Female
  Weight: 68 kg

DRUGS (6)
  1. VAGIFEM [Suspect]
     Indication: VAGINAL DYSPLASIA
     Dosage: 1 TAB, SINGLE, VAGINAL
     Route: 067
     Dates: start: 20070429, end: 20070429
  2. ZOLOFT [Concomitant]
  3. NEXIUM /01479302/ (ESOMEPRAZOLE MAGNESIUM) [Concomitant]
  4. GABAPENTIN [Concomitant]
  5. CIPRO /00042702/ (CYPROHEPTADINE HYDROCHLORIDE) [Concomitant]
  6. METRONIDAZOL /00012501/ (METRONIDAZOLE) [Concomitant]

REACTIONS (2)
  - RASH [None]
  - URTICARIA [None]
